FAERS Safety Report 6258625-7 (Version None)
Quarter: 2009Q3

REPORT INFORMATION
  Report Type: 
  Country: None (occurrence: None)
  Receive Date: 20090707
  Receipt Date: 20090703
  Transmission Date: 20100115
  Serious: Yes (Death)
  Sender: FDA-Public Use
  Company Number: CA-JNJFOC-20090701342

PATIENT
  Age: 75 Year
  Sex: Male

DRUGS (11)
  1. RISPERDAL [Suspect]
     Indication: DRUG USE FOR UNKNOWN INDICATION
     Route: 065
  2. PLAVIX [Suspect]
     Indication: DRUG USE FOR UNKNOWN INDICATION
     Route: 048
  3. SALOFALK [Suspect]
     Indication: DRUG USE FOR UNKNOWN INDICATION
     Route: 048
  4. ASPIRIN [Concomitant]
  5. CORTENEMA [Concomitant]
     Route: 054
  6. DESYREL [Concomitant]
  7. GLUCOPHAGE [Concomitant]
  8. HYDROCHLOROTHIAZIDE [Concomitant]
  9. IMDUR [Concomitant]
     Indication: DRUG USE FOR UNKNOWN INDICATION
  10. MONOCOR [Concomitant]
  11. SYNTHROID [Concomitant]

REACTIONS (4)
  - AGRANULOCYTOSIS [None]
  - INFECTION [None]
  - NEUTROPENIA [None]
  - PYREXIA [None]
